FAERS Safety Report 13546682 (Version 1)
Quarter: 2017Q2

REPORT INFORMATION
  Report Type: Spontaneous
  Country: US (occurrence: US)
  Receive Date: 20170515
  Receipt Date: 20170515
  Transmission Date: 20170830
  Serious: Yes (Life-Threatening)
  Sender: FDA-Public Use
  Company Number: None

PATIENT
  Age: 55 Year
  Sex: Female
  Weight: 98.2 kg

DRUGS (11)
  1. VITAMIN B12 [Concomitant]
     Active Substance: CYANOCOBALAMIN
  2. ALBUTEROL MDI [Concomitant]
     Active Substance: ALBUTEROL
  3. EPIPEN [Concomitant]
     Active Substance: EPINEPHRINE
  4. FISH OIL [Concomitant]
     Active Substance: FISH OIL
  5. GRASTEK [Suspect]
     Active Substance: PHLEUM PRATENSE POLLEN
     Indication: RHINITIS ALLERGIC
     Route: 060
     Dates: start: 20170214, end: 20170419
  6. FAMOTIDINE. [Concomitant]
     Active Substance: FAMOTIDINE
  7. LIDODERM [Concomitant]
     Active Substance: LIDOCAINE
  8. VITAMIN D3 [Concomitant]
     Active Substance: CHOLECALCIFEROL
  9. ELETRIPTAN. [Concomitant]
     Active Substance: ELETRIPTAN
  10. PATADAY [Concomitant]
     Active Substance: OLOPATADINE HYDROCHLORIDE
  11. CO-Q10 [Concomitant]

REACTIONS (2)
  - No reaction on previous exposure to drug [None]
  - Anaphylactic reaction [None]

NARRATIVE: CASE EVENT DATE: 20170419
